FAERS Safety Report 8999494 (Version 1)
Quarter: 2013Q1

REPORT INFORMATION
  Report Type: Spontaneous
  Country: DE (occurrence: DE)
  Receive Date: 20130103
  Receipt Date: 20130103
  Transmission Date: 20140127
  Serious: Yes (Life-Threatening, Hospitalization)
  Sender: FDA-Public Use
  Company Number: DE-ROCHE-1175060

PATIENT
  Age: 59 Year
  Sex: Male

DRUGS (7)
  1. ACTILYSE [Suspect]
     Indication: ACUTE MYOCARDIAL INFARCTION
     Route: 042
     Dates: start: 20010618, end: 20010618
  2. TIROFIBAN [Suspect]
     Indication: PRODUCT USED FOR UNKNOWN INDICATION
     Dosage: 4ML/HR
     Route: 065
     Dates: start: 20010618
  3. CLOPIDOGREL [Suspect]
     Indication: PRODUCT USED FOR UNKNOWN INDICATION
     Dosage: 300 MG/30 MIN
     Route: 065
  4. HEPARIN [Concomitant]
  5. ASA [Concomitant]
  6. FUROSEMIDE [Concomitant]
  7. BISOPROLOL [Concomitant]

REACTIONS (3)
  - Thrombocytopenia [Recovered/Resolved]
  - Haematuria [Recovered/Resolved]
  - Shock haemorrhagic [Recovered/Resolved]
